FAERS Safety Report 8461860-0 (Version None)
Quarter: 2012Q2

REPORT INFORMATION
  Report Type: 
  Country: None (occurrence: None)
  Receive Date: 20120619
  Receipt Date: 20120619
  Transmission Date: 20120825
  Serious: Yes (Life-Threatening, Hospitalization)
  Sender: FDA-Public Use
  Company Number: None

PATIENT
  Age: 75 Year
  Sex: Male
  Weight: 83.9154 kg

DRUGS (1)
  1. EXJADE [Suspect]
     Indication: IRON OVERLOAD
     Dosage: 1500 MG ONCE PO
     Route: 048
     Dates: start: 20120615, end: 20120615

REACTIONS (4)
  - URTICARIA [None]
  - OEDEMA MOUTH [None]
  - SWOLLEN TONGUE [None]
  - HYPERSENSITIVITY [None]
